FAERS Safety Report 9008936 (Version 5)
Quarter: 2014Q4

REPORT INFORMATION
  Report Type: Spontaneous
  Country: GB (occurrence: GB)
  Receive Date: 20130111
  Receipt Date: 20141203
  Transmission Date: 20150529
  Serious: Yes (Life-Threatening, Hospitalization)
  Sender: FDA-Public Use
  Company Number: GB-BAYER-2013-002531

PATIENT
  Age: 74 Year
  Sex: Female

DRUGS (14)
  1. PIPERACILLIN AND TAZOBACTAM [Suspect]
     Active Substance: PIPERACILLIN SODIUM\TAZOBACTAM SODIUM
     Indication: PERITONITIS BACTERIAL
     Dosage: 4.5 G, TID
     Route: 042
     Dates: end: 20110504
  2. CIPROFLOXACIN. [Suspect]
     Active Substance: CIPROFLOXACIN
     Indication: PROPHYLAXIS
     Dosage: 250 MG, BID
     Dates: start: 20110215, end: 20110303
  3. CIPROFLOXACIN. [Suspect]
     Active Substance: CIPROFLOXACIN
     Indication: PERITONITIS BACTERIAL
  4. PANCREATIN [Concomitant]
     Active Substance: PANCRELIPASE
  5. FOLIC ACID. [Concomitant]
     Active Substance: FOLIC ACID
  6. MULTIVITAMIN [Concomitant]
     Active Substance: VITAMINS
  7. BENZYDAMINE [Concomitant]
     Active Substance: BENZYDAMINE
  8. FUROSEMIDE. [Concomitant]
     Active Substance: FUROSEMIDE
  9. LACTULOSE. [Concomitant]
     Active Substance: LACTULOSE
  10. TAZOCIN [Suspect]
     Active Substance: PIPERACILLIN SODIUM\TAZOBACTAM SODIUM
     Indication: PNEUMONIA
     Dosage: 4.5 G, TID
     Route: 042
     Dates: start: 20110211, end: 20110215
  11. VITAMIN K [Concomitant]
     Active Substance: PHYTONADIONE
  12. OMEPRAZOLE. [Suspect]
     Active Substance: OMEPRAZOLE
     Dosage: UNK
  13. SPIRONOLACTONE. [Concomitant]
     Active Substance: SPIRONOLACTONE
  14. ADCAL-D3 [Concomitant]
     Active Substance: CALCIUM CARBONATE\CHOLECALCIFEROL

REACTIONS (3)
  - Diarrhoea [Recovered/Resolved]
  - Intestinal dilatation [Unknown]
  - Clostridium difficile infection [Recovered/Resolved]

NARRATIVE: CASE EVENT DATE: 20110312
